FAERS Safety Report 9272392 (Version 8)
Quarter: 2014Q2

REPORT INFORMATION
  Report Type: Spontaneous
  Country: FR (occurrence: FR)
  Receive Date: 20130506
  Receipt Date: 20140610
  Transmission Date: 20141212
  Serious: Yes (Death, Life-Threatening, Hospitalization, Other)
  Sender: FDA-Public Use
  Company Number: FR-PFIZER INC-2013025998

PATIENT
  Age: 59 Year
  Sex: Female

DRUGS (14)
  1. TAHOR [Suspect]
     Indication: BLOOD CHOLESTEROL INCREASED
     Dosage: 80 MG, 1X/DAY
     Dates: start: 2011
  2. TAHOR [Suspect]
     Indication: ARTERIAL STENOSIS
  3. NEORAL [Suspect]
     Dosage: 75 MG, 2X/DAY
  4. NEORAL [Suspect]
     Dosage: 50 MG, 2X/DAY
  5. ACICLOVIR [Concomitant]
     Dosage: 2 DF, DAILY
  6. ORACILLINE [Concomitant]
     Dosage: 2 MILLIONIU, DAILY
  7. DELURSAN [Concomitant]
     Dosage: 2 DF, 2X/DAY
  8. TENORMINE [Concomitant]
     Dosage: 50 MG, HALF A TABLET DAILY
  9. BACTRIM FORTE [Concomitant]
     Dosage: 1 TABLET, 3 TIMES WEEKLY
  10. INEXIUM [Concomitant]
     Dosage: 20 MG, DAILY
  11. LEXOMIL [Concomitant]
     Dosage: 0.25 DF, DAILY
  12. FORLAX [Concomitant]
     Dosage: 2 DF, 2X/DAY
  13. ASPIRINE [Concomitant]
     Dosage: 1 DF, DAILY
  14. CALCIPARIN [Concomitant]
     Dosage: 12000, 3 TIMES DAILY

REACTIONS (12)
  - Acute respiratory distress syndrome [Fatal]
  - Rhabdomyolysis [Unknown]
  - Renal failure [Unknown]
  - Acute respiratory distress syndrome [Not Recovered/Not Resolved]
  - Lung disorder [Unknown]
  - Acute pulmonary oedema [Unknown]
  - Oedema [Unknown]
  - Pleural effusion [Unknown]
  - Malnutrition [Unknown]
  - Dyspnoea [Unknown]
  - Critical illness polyneuropathy [Unknown]
  - Liver injury [Unknown]
